FAERS Safety Report 8599312-X (Version None)
Quarter: 2012Q3

REPORT INFORMATION
  Report Type: 
  Country: None (occurrence: None)
  Receive Date: 20120816
  Receipt Date: 20120729
  Transmission Date: 20120928
  Serious: Yes (Other)
  Sender: FDA-Public Use
  Company Number: DE-FRI-1000037303

PATIENT
  Sex: Female
  Weight: 48 kg

DRUGS (1)
  1. NEBIVOLOL [Suspect]
     Indication: SINUS TACHYCARDIA
     Dosage: 2.5 MG
     Route: 048

REACTIONS (3)
  - TACHYCARDIA [None]
  - SYNCOPE [None]
  - OFF LABEL USE [None]
